FAERS Safety Report 8015748-X (Version None)
Quarter: 2011Q4

REPORT INFORMATION
  Report Type: 
  Country: None (occurrence: None)
  Receive Date: 20111230
  Receipt Date: 20111222
  Transmission Date: 20120403
  Serious: Yes (Hospitalization)
  Sender: FDA-Public Use
  Company Number: PHHY2011JP103713

PATIENT
  Age: 31 Year
  Sex: Female

DRUGS (3)
  1. ACETAMINOPHEN [Suspect]
     Dosage: 20 MG
     Route: 048
  2. CARBAMAZEPINE [Interacting]
     Dosage: 3 G
     Route: 048
  3. PHENOBARBITAL TAB [Interacting]
     Route: 048

REACTIONS (10)
  - SUICIDE ATTEMPT [None]
  - DRUG INTERACTION [None]
  - HEPATIC ENZYME INCREASED [None]
  - HYPERAMMONAEMIA [None]
  - COAGULOPATHY [None]
  - ACUTE HEPATIC FAILURE [None]
  - HEPATIC ENCEPHALOPATHY [None]
  - TOXICITY TO VARIOUS AGENTS [None]
  - GRAND MAL CONVULSION [None]
  - ALTERED STATE OF CONSCIOUSNESS [None]
